FAERS Safety Report 6549130-9 (Version None)
Quarter: 2010Q1

REPORT INFORMATION
  Report Type: 
  Country: None (occurrence: None)
  Receive Date: 20100125
  Receipt Date: 20100120
  Transmission Date: 20100710
  Serious: Yes (Life-Threatening, Hospitalization)
  Sender: FDA-Public Use
  Company Number: US-ASTRAZENECA-2010SE02601

PATIENT
  Sex: Female

DRUGS (4)
  1. SEROQUEL [Suspect]
     Route: 048
  2. CYMBALTA [Suspect]
     Indication: DEPRESSION
     Route: 048
  3. LITHIUM [Concomitant]
  4. OTHER UNSPECIFIED MEDICATIONS DESCRIBED AS A BUNCH [Concomitant]

REACTIONS (2)
  - EXTRAPYRAMIDAL DISORDER [None]
  - SEROTONIN SYNDROME [None]
